FAERS Safety Report 20774458 (Version 3)
Quarter: 2022Q4

REPORT INFORMATION
  Report Type: Spontaneous
  Country: US (occurrence: US)
  Receive Date: 20220502
  Receipt Date: 20221118
  Transmission Date: 20230113
  Serious: Yes (Death, Life-Threatening, Hospitalization, Other)
  Sender: FDA-Public Use
  Company Number: US-CELGENE-USA-20210801180

PATIENT
  Age: 69 Year
  Sex: Female

DRUGS (48)
  1. AZACITIDINE [Suspect]
     Active Substance: AZACITIDINE
     Indication: Acute myeloid leukaemia
     Dosage: FREQUENCY TEXT: NOT PROVIDED
     Route: 042
     Dates: start: 20210730
  2. PEVONEDISTAT [Suspect]
     Active Substance: PEVONEDISTAT
     Indication: Acute myeloid leukaemia
     Dosage: FREQUENCY TEXT: NOT PROVIDED
     Route: 065
     Dates: start: 20210730
  3. VENETOCLAX [Suspect]
     Active Substance: VENETOCLAX
     Indication: Acute myeloid leukaemia
     Dosage: FREQUENCY TEXT: NOT PROVIDED
     Route: 048
     Dates: start: 20210730
  4. VENETOCLAX [Suspect]
     Active Substance: VENETOCLAX
     Route: 048
     Dates: start: 20210731
  5. VENETOCLAX [Suspect]
     Active Substance: VENETOCLAX
     Route: 048
     Dates: start: 20210801
  6. CIPROFLOXACIN [Concomitant]
     Active Substance: CIPROFLOXACIN
     Indication: Urinary tract infection bacterial
     Dosage: FREQUENCY TEXT: UNKNOWN
     Route: 065
     Dates: start: 20210715, end: 20210721
  7. MORPHINE SULFATE [Concomitant]
     Active Substance: MORPHINE SULFATE
     Indication: Back pain
     Dosage: FREQUENCY TEXT: UNKNOWN
     Route: 065
     Dates: start: 20210715, end: 20210803
  8. ALBUTEROL\IPRATROPIUM [Concomitant]
     Active Substance: ALBUTEROL\IPRATROPIUM
     Indication: Dyspnoea
     Dosage: FREQUENCY TEXT: UNKNOWN
     Route: 065
     Dates: start: 20210728, end: 20210810
  9. ALBUTEROL\IPRATROPIUM [Concomitant]
     Active Substance: ALBUTEROL\IPRATROPIUM
     Indication: Asthma
  10. DIPHENHYDRAMINE [Concomitant]
     Active Substance: DIPHENHYDRAMINE
     Indication: Premedication
     Dosage: FREQUENCY TEXT: UNKNOWN
     Route: 065
     Dates: start: 20210716, end: 20210801
  11. DOCUSATE SODIUM [Concomitant]
     Active Substance: DOCUSATE SODIUM
     Indication: Constipation
     Dosage: FREQUENCY TEXT: UNKNOWN
     Route: 065
     Dates: start: 20210715, end: 20210810
  12. METOPROLOL [Concomitant]
     Active Substance: METOPROLOL
     Indication: Blood pressure abnormal
     Dosage: FREQUENCY TEXT: UNKNOWN
     Route: 065
     Dates: start: 20210725, end: 20210810
  13. METRONIDAZOLE [Concomitant]
     Active Substance: METRONIDAZOLE
     Indication: Cystitis escherichia
     Dosage: FREQUENCY TEXT: UNKNOWN
     Route: 065
     Dates: start: 20210715, end: 20210720
  14. ONDANSETRON [Concomitant]
     Active Substance: ONDANSETRON
     Indication: Nausea
     Dosage: FREQUENCY TEXT: UNKNOWN
     Route: 065
     Dates: start: 20210715, end: 20210810
  15. MICRO-K [Concomitant]
     Active Substance: POTASSIUM CHLORIDE
     Indication: Mineral supplementation
     Dosage: FREQUENCY TEXT: UNKNOWN
     Route: 065
     Dates: start: 20210715, end: 20210808
  16. MICRO-K [Concomitant]
     Active Substance: POTASSIUM CHLORIDE
     Indication: Hypokalaemia
  17. MICRO-K [Concomitant]
     Active Substance: POTASSIUM CHLORIDE
     Indication: Acute kidney injury
  18. VORICONAZOLE [Concomitant]
     Active Substance: VORICONAZOLE
     Indication: Prophylaxis
     Dosage: FREQUENCY TEXT: UNKNOWN
     Route: 065
     Dates: start: 20210720, end: 20210805
  19. MAGNESIUM HYDROXIDE [Concomitant]
     Active Substance: MAGNESIUM HYDROXIDE
     Indication: Blood magnesium decreased
     Dosage: FREQUENCY TEXT: UNKNOWN
     Route: 065
     Dates: start: 20210720, end: 20210720
  20. MAGNESIUM HYDROXIDE [Concomitant]
     Active Substance: MAGNESIUM HYDROXIDE
     Indication: Constipation
  21. METHYLPREDNISOLONE [Concomitant]
     Active Substance: METHYLPREDNISOLONE
     Indication: Asthma
     Dosage: FREQUENCY TEXT: UNKNOWN
     Route: 065
     Dates: start: 20210729, end: 20210810
  22. ACETAMINOPHEN\HYDROCODONE [Concomitant]
     Active Substance: ACETAMINOPHEN\HYDROCODONE
     Indication: Back pain
     Dosage: FREQUENCY TEXT: UNKNOWN
     Route: 065
     Dates: start: 20210715, end: 20210802
  23. FUROSEMIDE [Concomitant]
     Active Substance: FUROSEMIDE
     Indication: Chronic kidney disease
     Dosage: FREQUENCY TEXT: UNKNOWN
     Route: 065
     Dates: start: 20210729, end: 20210731
  24. FUROSEMIDE [Concomitant]
     Active Substance: FUROSEMIDE
     Indication: Dyspnoea
  25. POLYETHYLENE GLYCOL, UNSPECIFIED [Concomitant]
     Active Substance: POLYETHYLENE GLYCOL, UNSPECIFIED
     Indication: Constipation
     Dosage: FREQUENCY TEXT: UNKNOWN
     Route: 065
     Dates: start: 20210715, end: 20210807
  26. MEROPENEM [Concomitant]
     Active Substance: MEROPENEM
     Indication: Product used for unknown indication
     Dosage: FREQUENCY TEXT: NOT PROVIDED
     Route: 065
  27. HYDROXYUREA [Concomitant]
     Active Substance: HYDROXYUREA
     Indication: White blood cell count increased
     Dosage: FREQUENCY TEXT: UNKNOWN
     Route: 065
     Dates: start: 20210715, end: 20210730
  28. SEVELAMER [Concomitant]
     Active Substance: SEVELAMER
     Indication: Haemodialysis
     Dosage: FREQUENCY TEXT: UNKNOWN
     Route: 065
     Dates: start: 20210729, end: 20210802
  29. SEVELAMER [Concomitant]
     Active Substance: SEVELAMER
     Indication: Renal injury
  30. PHOSPHA 250 NEUTRAL [Concomitant]
     Active Substance: POTASSIUM PHOSPHATE, MONOBASIC\SODIUM PHOSPHATE, DIBASIC, ANHYDROUS\SODIUM PHOSPHATE, MONOBASIC, MON
     Indication: Blood phosphorus decreased
     Dosage: FREQUENCY TEXT: UNKNOWN
     Route: 065
     Dates: start: 20210715, end: 20210717
  31. PHOSPHA 250 NEUTRAL [Concomitant]
     Active Substance: POTASSIUM PHOSPHATE, MONOBASIC\SODIUM PHOSPHATE, DIBASIC, ANHYDROUS\SODIUM PHOSPHATE, MONOBASIC, MON
     Indication: Diarrhoea
  32. SODIUM CHLORIDE [Concomitant]
     Active Substance: SODIUM CHLORIDE
     Indication: Catheter management
     Dosage: FREQUENCY TEXT: UNKNOWN
     Route: 065
     Dates: start: 20210715, end: 20210810
  33. SODIUM CHLORIDE [Concomitant]
     Active Substance: SODIUM CHLORIDE
     Indication: Transfusion
  34. TEMAZEPAM [Concomitant]
     Active Substance: TEMAZEPAM
     Indication: Insomnia
     Dosage: FREQUENCY TEXT: UNKNOWN
     Route: 065
     Dates: start: 20210727, end: 20210810
  35. VALACYCLOVIR [Concomitant]
     Active Substance: VALACYCLOVIR HYDROCHLORIDE
     Indication: Infection prophylaxis
     Dosage: FREQUENCY TEXT: UNKNOWN
     Route: 065
     Dates: start: 20210719, end: 20210810
  36. LACTOSE [Concomitant]
     Active Substance: LACTOSE
     Indication: Constipation
     Dosage: FREQUENCY TEXT: NOT PROVIDED
     Route: 065
     Dates: start: 20210720, end: 20210807
  37. DEXTROSE [Concomitant]
     Active Substance: DEXTROSE
     Indication: Escherichia urinary tract infection
     Dosage: FREQUENCY TEXT: NOT PROVIDED
     Route: 065
     Dates: start: 20210715, end: 20210723
  38. LACTULOSE [Concomitant]
     Active Substance: LACTULOSE
     Indication: Constipation
     Dosage: FREQUENCY TEXT: NOT PROVIDED
     Route: 065
     Dates: start: 20210720, end: 20210807
  39. INSULIN NOS [Concomitant]
     Active Substance: INSULIN NOS
     Indication: Diabetes mellitus
     Dosage: FREQUENCY TEXT: NOT PROVIDED
     Route: 065
     Dates: start: 20210730, end: 20210810
  40. OXYGEN [Concomitant]
     Active Substance: OXYGEN
     Indication: Dyspnoea
     Dosage: FREQUENCY TEXT: NOT PROVIDED?UNKNOWN
     Route: 065
     Dates: start: 20210728, end: 20210810
  41. OXYGEN [Concomitant]
     Active Substance: OXYGEN
     Indication: Hypervolaemia
  42. AMLODIPINE [Concomitant]
     Active Substance: AMLODIPINE BESYLATE
     Indication: Hypertension
     Dosage: FREQUENCY TEXT: NOT PROVIDED?UNKNOWN
     Route: 065
     Dates: start: 20210731, end: 20210810
  43. ADMELOG [Concomitant]
     Active Substance: INSULIN LISPRO
     Indication: Diabetes mellitus
     Dosage: FREQUENCY TEXT: NOT PROVIDED?UNKNOWN
     Route: 065
     Dates: start: 20210730, end: 20210809
  44. BUDESONIDE [Concomitant]
     Active Substance: BUDESONIDE
     Indication: Asthma
     Dosage: FREQUENCY TEXT: NOT PROVIDED?UNKNOWN
     Route: 065
     Dates: start: 20210729, end: 20210810
  45. ALBUMIN HUMAN [Concomitant]
     Active Substance: ALBUMIN HUMAN
     Indication: Product used for unknown indication
     Dosage: FREQUENCY TEXT: NOT PROVIDED?UNKNOWN
     Route: 065
  46. BUPROPION [Concomitant]
     Active Substance: BUPROPION
     Indication: Depression
     Route: 065
     Dates: start: 20210725, end: 20210810
  47. INSULIN PORK [Concomitant]
     Active Substance: INSULIN PORK\INSULIN PURIFIED PORK
     Indication: Diabetes mellitus
     Route: 065
     Dates: start: 20210730, end: 20210810
  48. ALLOPURINOL [Concomitant]
     Active Substance: ALLOPURINOL
     Indication: Tumour lysis syndrome
     Route: 065
     Dates: start: 20210726, end: 20210801

REACTIONS (4)
  - Gastrointestinal haemorrhage [Fatal]
  - Sepsis [Not Recovered/Not Resolved]
  - Acute respiratory failure [Not Recovered/Not Resolved]
  - Off label use [Unknown]

NARRATIVE: CASE EVENT DATE: 20210802
